FAERS Safety Report 15679883 (Version 1)
Quarter: 2018Q4

REPORT INFORMATION
  Report Type: Spontaneous
  Country: CA (occurrence: CA)
  Receive Date: 20181203
  Receipt Date: 20181203
  Transmission Date: 20190205
  Serious: Yes (Hospitalization, Other)
  Sender: FDA-Public Use
  Company Number: CA-TEVA-2018-CA-981537

PATIENT
  Age: 37 Year
  Sex: Female
  Weight: 158.9 kg

DRUGS (19)
  1. AMITRIPTYLINE [Concomitant]
     Active Substance: AMITRIPTYLINE
  2. NOVORAPID [Concomitant]
     Active Substance: INSULIN ASPART
  3. INDAPAMIDE. [Concomitant]
     Active Substance: INDAPAMIDE
  4. SALBUTAMOL [Concomitant]
     Active Substance: ALBUTEROL
  5. INVOKANA [Suspect]
     Active Substance: CANAGLIFLOZIN
     Indication: TYPE 2 DIABETES MELLITUS
     Dosage: 300 MILLIGRAM DAILY;
     Route: 048
  6. ACETAMINOPHEN. [Concomitant]
     Active Substance: ACETAMINOPHEN
  7. AMLODIPINE [Concomitant]
     Active Substance: AMLODIPINE BESYLATE
  8. CEFTRIAXONE SODIUM FOR INJECTION BP [Concomitant]
     Active Substance: CEFTRIAXONE SODIUM
  9. LATUDA FILM-COATED TABLETS [Concomitant]
  10. INDAPAMIDE. [Suspect]
     Active Substance: INDAPAMIDE
  11. LANTUS [Concomitant]
     Active Substance: INSULIN GLARGINE
  12. METFORMIN [Concomitant]
     Active Substance: METFORMIN HYDROCHLORIDE
  13. ENOXAPARIN [Concomitant]
     Active Substance: ENOXAPARIN
  14. CELECOXIB. [Suspect]
     Active Substance: CELECOXIB
  15. PERINDOPRIL [Suspect]
     Active Substance: PERINDOPRIL
     Route: 065
  16. PREGABALIN. [Concomitant]
     Active Substance: PREGABALIN
  17. ROSUVASTATIN. [Concomitant]
     Active Substance: ROSUVASTATIN
  18. SYMBICORT [Concomitant]
     Active Substance: BUDESONIDE\FORMOTEROL FUMARATE DIHYDRATE
  19. VICTOZA MULTIDOSE PEN-INJECTOR. [Concomitant]

REACTIONS (2)
  - Sepsis [Recovered/Resolved]
  - Acute kidney injury [Recovered/Resolved]
